FAERS Safety Report 10261766 (Version 1)
Quarter: 2014Q2

REPORT INFORMATION
  Report Type: Spontaneous
  Country: FR (occurrence: FR)
  Receive Date: 20140626
  Receipt Date: 20140626
  Transmission Date: 20141212
  Serious: Yes (Life-Threatening, Hospitalization)
  Sender: FDA-Public Use
  Company Number: FR-ASTRAZENECA-2014SE46603

PATIENT
  Age: 681 Month
  Sex: Male

DRUGS (2)
  1. CRESTOR [Suspect]
     Route: 048
  2. IBUPROFEN [Interacting]
     Indication: ARTHRALGIA
     Route: 065
     Dates: start: 201401

REACTIONS (3)
  - Drug interaction [Unknown]
  - Renal failure acute [Unknown]
  - Rhabdomyolysis [Unknown]
